FAERS Safety Report 17547021 (Version 1)
Quarter: 2020Q1

REPORT INFORMATION
  Report Type: Spontaneous
  Country: ZA (occurrence: ZA)
  Receive Date: 20200316
  Receipt Date: 20200316
  Transmission Date: 20200409
  Serious: Yes (Other)
  Sender: FDA-Public Use
  Company Number: ZA-PFIZER INC-2020111651

PATIENT
  Age: 56 Year
  Sex: Female
  Weight: 69.2 kg

DRUGS (1)
  1. METHOTREXATE. [Suspect]
     Active Substance: METHOTREXATE
     Dosage: 15 MG
     Dates: start: 20120506, end: 20130909

REACTIONS (3)
  - Mouth ulceration [Unknown]
  - Diarrhoea [Unknown]
  - Hepatitis [Unknown]
